FAERS Safety Report 5914686-3 (Version None)
Quarter: 2008Q4

REPORT INFORMATION
  Report Type: 
  Country: None (occurrence: None)
  Receive Date: 20081010
  Receipt Date: 20081002
  Transmission Date: 20090506
  Serious: Yes (Hospitalization)
  Sender: FDA-Public Use
  Company Number: ES-JNJFOC-20081000627

PATIENT
  Age: 68 Year
  Sex: Male

DRUGS (1)
  1. TAVANIC [Suspect]
     Indication: RESPIRATORY TRACT INFECTION
     Route: 048

REACTIONS (3)
  - ABDOMINAL PAIN [None]
  - DIARRHOEA [None]
  - RECTAL TENESMUS [None]
